FAERS Safety Report 8014372-2 (Version None)
Quarter: 2011Q4

REPORT INFORMATION
  Report Type: 
  Country: None (occurrence: None)
  Receive Date: 20111229
  Receipt Date: 20111221
  Transmission Date: 20120403
  Serious: Yes (Other)
  Sender: FDA-Public Use
  Company Number: PHHY2011AR111545

PATIENT
  Sex: Female

DRUGS (2)
  1. EXELON [Suspect]
     Indication: CEREBRAL DISORDER
     Dosage: 1 DF, DAILY
     Route: 062
     Dates: start: 20110601
  2. ALPLAX [Concomitant]
     Dosage: UNK UKN, UNK

REACTIONS (2)
  - VASCULAR DEMENTIA [None]
  - CEREBROVASCULAR ACCIDENT [None]
